FAERS Safety Report 5488849-8 (Version None)
Quarter: 2007Q4

REPORT INFORMATION
  Report Type: 
  Country: None (occurrence: None)
  Receive Date: 20071017
  Receipt Date: 20071005
  Transmission Date: 20080405
  Serious: Yes (Other)
  Sender: FDA-Public Use
  Company Number: US-PFIZER INC-2007083898

PATIENT
  Sex: Female
  Weight: 83.9 kg

DRUGS (2)
  1. NEURONTIN [Suspect]
     Indication: NEURALGIA
  2. LYRICA [Suspect]
     Indication: NEURALGIA

REACTIONS (2)
  - MUSCULOSKELETAL STIFFNESS [None]
  - SPINAL CORD DISORDER [None]
